FAERS Safety Report 16358745 (Version 1)
Quarter: 2019Q2

REPORT INFORMATION
  Report Type: Spontaneous
  Country: ES (occurrence: ES)
  Receive Date: 20190527
  Receipt Date: 20190527
  Transmission Date: 20190711
  Serious: Yes (Other)
  Sender: FDA-Public Use
  Company Number: PHHY2019ES119831

PATIENT
  Sex: Male

DRUGS (1)
  1. GILENYA [Suspect]
     Active Substance: FINGOLIMOD HYDROCHLORIDE
     Indication: MULTIPLE SCLEROSIS
     Dosage: UNK
     Route: 065
     Dates: start: 201103

REACTIONS (17)
  - Multiple sclerosis relapse [Unknown]
  - Cognitive disorder [Unknown]
  - Dysphonia [Not Recovered/Not Resolved]
  - Atrophy [Unknown]
  - Muscular weakness [Unknown]
  - Ataxia [Unknown]
  - Central nervous system lesion [Unknown]
  - Secondary progressive multiple sclerosis [Unknown]
  - Motor dysfunction [Unknown]
  - Decreased vibratory sense [Unknown]
  - Visual impairment [Unknown]
  - Gait disturbance [Unknown]
  - Therapy partial responder [Unknown]
  - Paraparesis [Unknown]
  - General physical health deterioration [Unknown]
  - Dysarthria [Not Recovered/Not Resolved]
  - Coordination abnormal [Unknown]

NARRATIVE: CASE EVENT DATE: 2012
